FAERS Safety Report 8125202-2 (Version None)
Quarter: 2012Q1

REPORT INFORMATION
  Report Type: 
  Country: None (occurrence: None)
  Receive Date: 20120209
  Receipt Date: 20120202
  Transmission Date: 20120608
  Serious: No
  Sender: FDA-Public Use
  Company Number: US-BAYER-2011-091853

PATIENT
  Age: 57 Year
  Sex: Female

DRUGS (2)
  1. NEXAVAR [Suspect]
     Dosage: 400 MG, BID
     Route: 048
     Dates: start: 20110628, end: 20110101
  2. NEXAVAR [Suspect]
     Dosage: 200 MG, QD
     Dates: start: 20110801, end: 20110901

REACTIONS (5)
  - STOMATITIS [None]
  - RASH ERYTHEMATOUS [None]
  - DIARRHOEA [None]
  - DRUG INEFFECTIVE [None]
  - ALOPECIA [None]
